FAERS Safety Report 10051005 (Version 1)
Quarter: 2014Q2

REPORT INFORMATION
  Report Type: Spontaneous
  Country: US (occurrence: US)
  Receive Date: 20140401
  Receipt Date: 20140401
  Transmission Date: 20141212
  Serious: Yes (Hospitalization, Other)
  Sender: FDA-Public Use
  Company Number: US-BAYER-2014-049144

PATIENT
  Age: 30 Year
  Sex: Female
  Weight: 44.9 kg

DRUGS (9)
  1. YAZ [Suspect]
  2. YASMIN [Suspect]
  3. PREDNISONE [Concomitant]
  4. SYNTHROID [Concomitant]
     Dosage: 25MCG DAILY
  5. ACIPHEX [Concomitant]
     Dosage: 20MG A DAY
     Route: 048
  6. ELAVIL [Concomitant]
     Dosage: 10MG AT BEDTIME
     Route: 048
  7. PANCRELIPASE MT 16 [Concomitant]
     Dosage: 10 CAPSULES 3 TIMES A DAY WITH MEALS
     Route: 048
  8. ASPIRIN [Concomitant]
  9. TPN [Concomitant]

REACTIONS (2)
  - Subclavian vein thrombosis [None]
  - Pulmonary embolism [None]
